FAERS Safety Report 8994743 (Version 1)
Quarter: 2012Q4

REPORT INFORMATION
  Report Type: Spontaneous
  Country: US (occurrence: None)
  Receive Date: 20121228
  Receipt Date: 20121228
  Transmission Date: 20130627
  Serious: Yes (Other)
  Sender: FDA-Public Use
  Company Number: None

PATIENT
  Age: 42 Year
  Sex: Female
  Weight: 61 kg

DRUGS (1)
  1. REMBRANDT 2 HOUR WHITENING KIT [Suspect]
     Indication: DENTAL CARE
     Route: 004
     Dates: start: 20121205, end: 20121205

REACTIONS (6)
  - Oral pain [None]
  - Gingival pain [None]
  - Lip pain [None]
  - Oral mucosal blistering [None]
  - Oral mucosal exfoliation [None]
  - Aphthous stomatitis [None]
